FAERS Safety Report 24756302 (Version 2)
Quarter: 2024Q4

REPORT INFORMATION
  Report Type: Spontaneous
  Country: DE (occurrence: DE)
  Receive Date: 20241220
  Receipt Date: 20241224
  Transmission Date: 20250114
  Serious: Yes (Other)
  Sender: JOHNSON AND JOHNSON
  Company Number: DE-GERMAN-LIT/DEU/24/0018264

PATIENT
  Age: 59 Year
  Sex: Female

DRUGS (10)
  1. VELCADE [Suspect]
     Active Substance: BORTEZOMIB
     Indication: Plasma cell leukaemia
     Dosage: D-VD REGIMEN
     Route: 065
  2. DARZALEX [Suspect]
     Active Substance: DARATUMUMAB
     Indication: Plasma cell leukaemia
     Dosage: D-VD REGIMEN
     Route: 065
  3. DOXORUBICIN [Suspect]
     Active Substance: DOXORUBICIN
     Indication: Plasma cell leukaemia
     Dosage: D-VD-PACE REGIMEN
     Route: 065
  4. CYCLOPHOSPHAMIDE [Suspect]
     Active Substance: CYCLOPHOSPHAMIDE
     Indication: Plasma cell leukaemia
     Dosage: D-VD-PACE AND ISA-KCYD REGIMEN
     Route: 065
  5. LENALIDOMIDE [Suspect]
     Active Substance: LENALIDOMIDE
     Indication: Plasma cell leukaemia
     Route: 065
  6. DEXAMETHASONE [Suspect]
     Active Substance: DEXAMETHASONE
     Indication: Plasma cell leukaemia
     Dosage: D-VD AND ISA-KCYD REGIMEN
     Route: 065
  7. ETOPOSIDE [Concomitant]
     Active Substance: ETOPOSIDE
     Indication: Plasma cell leukaemia
     Dosage: D-VD-PACE REGIMEN
     Route: 065
  8. CARFILZOMIB [Concomitant]
     Active Substance: CARFILZOMIB
     Indication: Plasma cell leukaemia
     Dosage: ISA-KCYD REGIMEN
     Route: 065
  9. ISATUXIMAB [Concomitant]
     Active Substance: ISATUXIMAB
     Indication: Plasma cell leukaemia
     Dosage: ISA-KCYD REGIMEN
     Route: 065
  10. CISPLATIN [Concomitant]
     Active Substance: CISPLATIN
     Indication: Plasma cell leukaemia
     Dosage: D-VD-PACE REGIMEN
     Route: 065

REACTIONS (3)
  - Malignant neoplasm progression [Unknown]
  - Drug ineffective [Unknown]
  - Product use in unapproved indication [Unknown]
